FAERS Safety Report 20015712 (Version 1)
Quarter: 2021Q4

REPORT INFORMATION
  Report Type: Spontaneous
  Country: US (occurrence: None)
  Receive Date: 20211101
  Receipt Date: 20211101
  Transmission Date: 20220304
  Serious: No
  Sender: FDA-Public Use
  Company Number: None

PATIENT
  Age: 76 Year
  Sex: Female
  Weight: 54.40 kg

DRUGS (22)
  1. TAFINLAR [Suspect]
     Active Substance: DABRAFENIB MESYLATE
     Indication: Hepatic cancer
     Dosage: FREQUENCY : TWICE A DAY;?
     Route: 048
  2. metroNIDAZOLE Oral Tablet 250 [Concomitant]
  3. Dicyclomine HCl Oral Tablet 20 [Concomitant]
  4. Ciprofloxacin HCl Oral Tablet [Concomitant]
  5. TRAMADOL HCL [Concomitant]
     Active Substance: TRAMADOL HYDROCHLORIDE
  6. PLAQUENIL [Concomitant]
     Active Substance: HYDROXYCHLOROQUINE SULFATE
  7. ATROPINE\DIPHENOXYLATE [Concomitant]
     Active Substance: ATROPINE\DIPHENOXYLATE
  8. PROCHLORPERAZINE MALEATE [Concomitant]
     Active Substance: PROCHLORPERAZINE MALEATE
  9. PREDNISONE [Concomitant]
     Active Substance: PREDNISONE
  10. CELEBREX [Concomitant]
     Active Substance: CELECOXIB
  11. HUMALOG KWIKPEN [Concomitant]
     Active Substance: INSULIN LISPRO
  12. LEVEMIR [Concomitant]
     Active Substance: INSULIN DETEMIR
  13. OneTouch Ultra [Concomitant]
  14. ROSUVASTATIN CALCIUM [Concomitant]
     Active Substance: ROSUVASTATIN CALCIUM
  15. VALSARTAN [Concomitant]
     Active Substance: VALSARTAN
  16. OMEPRAZOLE [Concomitant]
     Active Substance: OMEPRAZOLE
  17. ALEVE [Concomitant]
     Active Substance: NAPROXEN SODIUM
  18. METFORMIN HYDROCHLORIDE [Concomitant]
     Active Substance: METFORMIN HYDROCHLORIDE
  19. METAXALONE [Concomitant]
     Active Substance: METAXALONE
  20. LEVOTHYROXINE SODIUM [Concomitant]
     Active Substance: LEVOTHYROXINE SODIUM
  21. LABETALOL HYDROCHLORIDE [Concomitant]
     Active Substance: LABETALOL HYDROCHLORIDE
  22. AMLODIPINE BESYLATE [Concomitant]
     Active Substance: AMLODIPINE BESYLATE

REACTIONS (1)
  - Large intestine infection [None]

NARRATIVE: CASE EVENT DATE: 19450210
